FAERS Safety Report 18725693 (Version 1)
Quarter: 2021Q1

REPORT INFORMATION
  Report Type: Spontaneous
  Country: US (occurrence: US)
  Receive Date: 20210111
  Receipt Date: 20210111
  Transmission Date: 20210419
  Serious: Yes (Hospitalization)
  Sender: FDA-Public Use
  Company Number: US-MYLANLABS-2021M1000867

PATIENT
  Age: 48 Year
  Sex: Female

DRUGS (2)
  1. SEVELAMER [Suspect]
     Active Substance: SEVELAMER
     Indication: HYPERPHOSPHATAEMIA
  2. SEVELAMER [Suspect]
     Active Substance: SEVELAMER
     Indication: SUPPORTIVE CARE
     Dosage: UNK
     Route: 065

REACTIONS (5)
  - Hypotension [Unknown]
  - Colitis [Recovering/Resolving]
  - Large intestinal ulcer [Unknown]
  - Large intestinal stenosis [Unknown]
  - Anaemia [Unknown]
